FAERS Safety Report 5124255-3 (Version None)
Quarter: 2006Q4

REPORT INFORMATION
  Report Type: 
  Country: None (occurrence: None)
  Receive Date: 20061010
  Receipt Date: 20041214
  Transmission Date: 20070319
  Serious: Yes (Death)
  Sender: FDA-Public Use
  Company Number: US-ABBOTT-04P-163-0283265-00

PATIENT
  Sex: Male

DRUGS (11)
  1. RITONAVIR SOFT GELATIN CAPSULES [Suspect]
     Indication: HIV INFECTION
     Route: 048
     Dates: start: 20021210, end: 20040809
  2. STAVUDINE [Concomitant]
     Indication: HIV INFECTION
     Dates: end: 20040809
  3. VIREAD [Concomitant]
     Indication: HIV INFECTION
     Dates: end: 20040809
  4. ABACAVIR [Concomitant]
     Indication: HIV INFECTION
     Dates: end: 20040809
  5. LAMIVUDINE [Concomitant]
     Indication: HIV INFECTION
  6. TIPRANAVIR [Concomitant]
     Indication: HIV INFECTION
     Route: 048
     Dates: start: 20021210, end: 20040809
  7. ANTIHEMOPHILIC FACTOR (HUMAN) [Concomitant]
     Indication: FACTOR VIII DEFICIENCY
     Route: 058
     Dates: start: 20020720
  8. DAPSONE [Concomitant]
     Indication: ANTIBIOTIC PROPHYLAXIS
     Route: 048
     Dates: start: 19970101
  9. AZITHROMYCIN [Concomitant]
     Indication: PROPHYLAXIS
     Route: 048
     Dates: start: 19970101
  10. ABACAVIR SULFATE [Concomitant]
     Indication: HIV INFECTION
     Route: 048
     Dates: start: 20000701
  11. DIDANOSINE [Concomitant]
     Indication: HIV INFECTION
     Route: 048
     Dates: start: 20020701, end: 20040908

REACTIONS (3)
  - CARDIAC FAILURE [None]
  - CARDIAC TAMPONADE [None]
  - RENAL FAILURE [None]
